FAERS Safety Report 6773815-2 (Version None)
Quarter: 2010Q2

REPORT INFORMATION
  Report Type: 
  Country: None (occurrence: None)
  Receive Date: 20100617
  Receipt Date: 20100608
  Transmission Date: 20101027
  Serious: No
  Sender: FDA-Public Use
  Company Number: US-BIOGENIDEC-2010BI019578

PATIENT
  Sex: Female

DRUGS (1)
  1. TYSABRI [Suspect]
     Indication: MULTIPLE SCLEROSIS
     Route: 042
     Dates: start: 20070110

REACTIONS (6)
  - CONCUSSION [None]
  - DIZZINESS [None]
  - EYE PAIN [None]
  - FALL [None]
  - VISION BLURRED [None]
  - VISUAL IMPAIRMENT [None]
